FAERS Safety Report 4318181-7 (Version None)
Quarter: 2004Q1

REPORT INFORMATION
  Report Type: 
  Country: None (occurrence: None)
  Receive Date: 20040317
  Receipt Date: 20040311
  Transmission Date: 20041129
  Serious: Yes (Other)
  Sender: FDA-Public Use
  Company Number: US-ROCHE-361523

PATIENT
  Age: 52 Year
  Sex: Male

DRUGS (4)
  1. ZENAPAX [Suspect]
     Indication: HEPATITIS C
     Route: 042
     Dates: start: 20040227
  2. ZENAPAX [Suspect]
     Route: 042
     Dates: start: 20040229
  3. MYCOPHENOLATE MOFETIL [Suspect]
     Indication: HEPATITIS C
     Route: 048
     Dates: start: 20040227
  4. PROGRAF [Suspect]
     Indication: HEPATITIS C
     Route: 048
     Dates: start: 20040227

REACTIONS (1)
  - CONFUSIONAL STATE [None]
